FAERS Safety Report 4933900-4 (Version None)
Quarter: 2006Q1

REPORT INFORMATION
  Report Type: 
  Country: None (occurrence: None)
  Receive Date: 20060301
  Receipt Date: 20051104
  Transmission Date: 20060701
  Serious: Yes (Other)
  Sender: FDA-Public Use
  Company Number: 2006022202

PATIENT
  Age: 56 Year
  Sex: Male

DRUGS (5)
  1. BEXTRA [Suspect]
     Indication: JOINT DISLOCATION
     Dosage: 20 MG (20 MG, 1 IN 1 D), UNKNOWN
     Dates: start: 20030729
  2. BEXTRA [Suspect]
     Indication: JOINT SPRAIN
     Dosage: 20 MG (20 MG, 1 IN 1 D), UNKNOWN
     Dates: start: 20030729
  3. BEXTRA [Suspect]
     Indication: TENDONITIS
     Dosage: 20 MG (20 MG, 1 IN 1 D), UNKNOWN
     Dates: start: 20030729
  4. ALL OTHER NON-THERAPEUTIC PRODUCTS (ALL OTHER NON-THERAPEUTIC PRODUCTS [Suspect]
     Indication: ILL-DEFINED DISORDER
     Dates: start: 20041002
  5. MOTRIN [Concomitant]

REACTIONS (8)
  - ARTHRALGIA [None]
  - EXPOSURE TO TOXIC AGENT [None]
  - EYE SWELLING [None]
  - MENISCUS LESION [None]
  - RASH PRURITIC [None]
  - STEVENS-JOHNSON SYNDROME [None]
  - SWELLING [None]
  - URTICARIA [None]
